FAERS Safety Report 7964319-X (Version None)
Quarter: 2011Q4

REPORT INFORMATION
  Report Type: 
  Country: None (occurrence: None)
  Receive Date: 20111208
  Receipt Date: 20111128
  Transmission Date: 20120403
  Serious: Yes (Hospitalization, Other)
  Sender: FDA-Public Use
  Company Number: US-BAYER-2011-033936

PATIENT
  Age: 28 Year
  Sex: Female
  Weight: 90 kg

DRUGS (2)
  1. ACETAMINOPHEN [Concomitant]
     Indication: ABDOMINAL PAIN UPPER
     Dosage: UNK
     Dates: start: 20090501
  2. YAZ [Suspect]
     Indication: CONTRACEPTION

REACTIONS (6)
  - PULMONARY EMBOLISM [None]
  - INJURY [None]
  - GALLBLADDER DISORDER [None]
  - DEEP VEIN THROMBOSIS [None]
  - CHOLELITHIASIS [None]
  - PAIN [None]
